FAERS Safety Report 4463221-8 (Version None)
Quarter: 2004Q3

REPORT INFORMATION
  Report Type: 
  Country: None (occurrence: None)
  Receive Date: 20040930
  Receipt Date: 20031212
  Transmission Date: 20050211
  Serious: Yes (Other)
  Sender: FDA-Public Use
  Company Number: PHEH2003US11401

PATIENT
  Age: 54 Year
  Sex: Female

DRUGS (3)
  1. COUMADIN [Concomitant]
     Indication: THROMBOSIS
     Dosage: 5 MG, QD
     Route: 048
     Dates: start: 20030501
  2. NOVOLOG [Concomitant]
     Dosage: 2 IU, TID
     Route: 058
     Dates: start: 20030501
  3. GLEEVEC [Suspect]
     Indication: GASTROINTESTINAL STROMAL TUMOUR
     Dosage: 400 MG, QD
     Route: 048
     Dates: start: 20031129

REACTIONS (6)
  - ABDOMINAL PAIN UPPER [None]
  - BLOOD AMYLASE INCREASED [None]
  - LIPASE INCREASED [None]
  - NAUSEA [None]
  - PANCREATITIS [None]
  - VOMITING [None]
